FAERS Safety Report 8222367-9 (Version None)
Quarter: 2012Q1

REPORT INFORMATION
  Report Type: 
  Country: None (occurrence: None)
  Receive Date: 20120316
  Receipt Date: 20120222
  Transmission Date: 20120608
  Serious: Yes (Hospitalization)
  Sender: FDA-Public Use
  Company Number: ES-025417

PATIENT
  Age: 79 Year
  Sex: Male
  Weight: 75.8 kg

DRUGS (3)
  1. (OFATUMUMAB) [Suspect]
     Indication: CHRONIC LYMPHOCYTIC LEUKAEMIA
     Dosage: INJECTION
     Route: 042
     Dates: start: 20100430
  2. CEFTAZIDIME [Concomitant]
  3. CHLORAMBUCIL (CHLORAMBUCIL ) [Suspect]
     Indication: CHRONIC LYMPHOCYTIC LEUKAEMIA
     Dosage: TABLET 10MG/M2 ORAL
     Route: 048
     Dates: start: 20100430

REACTIONS (1)
  - LOBAR PNEUMONIA [None]
